FAERS Safety Report 5357332-2 (Version None)
Quarter: 2007Q2

REPORT INFORMATION
  Report Type: 
  Country: None (occurrence: None)
  Receive Date: 20070614
  Receipt Date: 20070608
  Transmission Date: 20071010
  Serious: Yes (Other)
  Sender: FDA-Public Use
  Company Number: A0647248A

PATIENT
  Age: 41 Year
  Sex: Female
  Weight: 96.4 kg

DRUGS (10)
  1. PAXIL [Suspect]
     Indication: DEPRESSION
     Route: 065
  2. PEGASYS [Suspect]
     Indication: HEPATITIS C
     Dosage: 180MCG WEEKLY
     Route: 058
     Dates: start: 20060921, end: 20070301
  3. RIBAVIRIN [Suspect]
     Indication: HEPATITIS C
     Dosage: 400MG TWICE PER DAY
     Route: 058
     Dates: start: 20060921, end: 20070301
  4. VICOPROFEN [Concomitant]
  5. XANAX [Concomitant]
  6. AMBIEN [Concomitant]
  7. ZYRTEC [Concomitant]
  8. NASONEX [Concomitant]
  9. PREVACID [Concomitant]
  10. STOOL SOFTENER [Concomitant]

REACTIONS (19)
  - ANOREXIA [None]
  - ASTHENIA [None]
  - BLOOD THYROID STIMULATING HORMONE INCREASED [None]
  - CANDIDIASIS [None]
  - CHEILITIS [None]
  - CONTUSION [None]
  - DEPRESSION [None]
  - HOT FLUSH [None]
  - HYPOTHYROIDISM [None]
  - INSOMNIA [None]
  - MOUTH ULCERATION [None]
  - MYALGIA [None]
  - MYOSITIS [None]
  - OEDEMA PERIPHERAL [None]
  - PAIN IN EXTREMITY [None]
  - PSYCHOTIC DISORDER [None]
  - THINKING ABNORMAL [None]
  - WEIGHT INCREASED [None]
  - WHITE BLOOD CELL COUNT DECREASED [None]
